FAERS Safety Report 23226437 (Version 1)
Quarter: 2023Q4

REPORT INFORMATION
  Report Type: Spontaneous
  Country: CA (occurrence: CA)
  Receive Date: 20231124
  Receipt Date: 20231124
  Transmission Date: 20240110
  Serious: Yes (Other)
  Sender: FDA-Public Use
  Company Number: CA-PFIZER INC-202300396765

PATIENT
  Age: 13 Year
  Sex: Male

DRUGS (4)
  1. METHOTREXATE SODIUM [Suspect]
     Active Substance: METHOTREXATE SODIUM
     Dosage: 10 MG, WEEKLY
     Route: 048
  2. FOLIC ACID [Concomitant]
     Active Substance: FOLIC ACID
     Dosage: 5 MG, DAILY
     Route: 048
  3. PREDNISONE [Concomitant]
     Active Substance: PREDNISONE
     Dosage: UNK, (SHORT COURSES)
  4. XELJANZ [Concomitant]
     Active Substance: TOFACITINIB CITRATE
     Indication: Rheumatoid arthritis
     Dosage: 5 MG, 1X/DAY
     Route: 048
     Dates: end: 202308

REACTIONS (22)
  - Knee arthroplasty [Unknown]
  - Arthrodesis [Unknown]
  - Uveitis [Unknown]
  - Juvenile idiopathic arthritis [Unknown]
  - Therapeutic product effect incomplete [Unknown]
  - Liver disorder [Unknown]
  - Arthralgia [Not Recovered/Not Resolved]
  - Joint swelling [Not Recovered/Not Resolved]
  - Neck pain [Not Recovered/Not Resolved]
  - Musculoskeletal stiffness [Not Recovered/Not Resolved]
  - White blood cell count increased [Unknown]
  - Oedema [Not Recovered/Not Resolved]
  - Inflammation [Unknown]
  - Metaplasia [Unknown]
  - Sacroiliitis [Unknown]
  - Intervertebral disc degeneration [Not Recovered/Not Resolved]
  - Abdominal discomfort [Unknown]
  - Stomatitis [Unknown]
  - Alopecia [Unknown]
  - Full blood count abnormal [Unknown]
  - Lung disorder [Unknown]
  - Bone erosion [Unknown]

NARRATIVE: CASE EVENT DATE: 20180801
